FAERS Safety Report 15188578 (Version 1)
Quarter: 2018Q3

REPORT INFORMATION
  Report Type: Spontaneous
  Country: US (occurrence: US)
  Receive Date: 20180724
  Receipt Date: 20180724
  Transmission Date: 20181010
  Serious: No
  Sender: FDA-Public Use
  Company Number: US-BIOGEN-2018BI00611667

PATIENT
  Age: 60 Year
  Sex: Female

DRUGS (1)
  1. TYSABRI [Suspect]
     Active Substance: NATALIZUMAB
     Indication: MULTIPLE SCLEROSIS
     Route: 042
     Dates: start: 20160205, end: 20180102

REACTIONS (7)
  - Urticaria [Recovered/Resolved]
  - Lip swelling [Recovered/Resolved]
  - Gait disturbance [Unknown]
  - Pruritus [Recovered/Resolved]
  - Decreased immune responsiveness [Recovered/Resolved]
  - Multiple allergies [Recovered/Resolved]
  - Eye swelling [Recovered/Resolved]

NARRATIVE: CASE EVENT DATE: 20160205
